FAERS Safety Report 9006504 (Version 1)
Quarter: 2012Q4

REPORT INFORMATION
  Report Type: 
  Country: US (occurrence: None)
  Receive Date: 20121227
  Receipt Date: 20121227
  Transmission Date: 20130627
  Serious: Yes (Hospitalization)
  Sender: FDA-Public Use
  Company Number: 2012SP005002

PATIENT
  Sex: Male
  Weight: 63 kg

DRUGS (6)
  1. FOSPHENYTOIN SODIUM [Suspect]
     Indication: CONVULSION PROPHYLAXIS
     Route: 042
     Dates: start: 20121204, end: 20121204
  2. FAMOTIDINE [Concomitant]
  3. METOCLOPRAMIDE [Concomitant]
  4. HYDROCHLORIDE [Concomitant]
  5. CEFAZOLIN SODIUM [Concomitant]
  6. PROPOFOL [Concomitant]

REACTIONS (4)
  - Aspartate aminotransferase increased [None]
  - Alanine aminotransferase increased [None]
  - Blood lactate dehydrogenase increased [None]
  - Blood creatine phosphokinase increased [None]
